FAERS Safety Report 4651065-3 (Version None)
Quarter: 2005Q2

REPORT INFORMATION
  Report Type: 
  Country: None (occurrence: None)
  Receive Date: 20050503
  Receipt Date: 20031120
  Transmission Date: 20051028
  Serious: Yes (Other)
  Sender: FDA-Public Use
  Company Number: PHNU2003DE04125

PATIENT
  Age: 28 Year
  Sex: Female

DRUGS (4)
  1. TEGRETOL [Suspect]
     Indication: SCHIZOAFFECTIVE DISORDER
     Dosage: 500MG/DAY
     Route: 048
     Dates: start: 20020101
  2. TEGRETOL [Suspect]
     Dosage: 400MG/DAY
     Route: 048
     Dates: end: 20020101
  3. RISPERDAL [Concomitant]
     Indication: SCHIZOAFFECTIVE DISORDER
     Dosage: 2 MG, BID
     Route: 048
     Dates: start: 20020101
  4. ALCOHOL [Concomitant]

REACTIONS (4)
  - BLOOD ALCOHOL INCREASED [None]
  - DRUG LEVEL DECREASED [None]
  - HALLUCINATION [None]
  - SCHIZOAFFECTIVE DISORDER [None]
